FAERS Safety Report 22249489 (Version 3)
Quarter: 2024Q4

REPORT INFORMATION
  Report Type: Report from Study
  Country: US (occurrence: US)
  Receive Date: 20230425
  Receipt Date: 20241230
  Transmission Date: 20250115
  Serious: Yes (Hospitalization)
  Sender: NOVARTIS
  Company Number: US-002147023-NVSC2023US092814

PATIENT
  Sex: Male

DRUGS (1)
  1. JADENU [Suspect]
     Active Substance: DEFERASIROX
     Indication: Myelodysplastic syndrome
     Dosage: 360 MG, QD
     Route: 048
     Dates: start: 20200829

REACTIONS (3)
  - Hypoacusis [Unknown]
  - Diarrhoea [Unknown]
  - Vomiting [Unknown]
